FAERS Safety Report 9171721 (Version 1)
Quarter: 2013Q1

REPORT INFORMATION
  Report Type: Spontaneous
  Country: US (occurrence: US)
  Receive Date: 20130319
  Receipt Date: 20130319
  Transmission Date: 20140127
  Serious: Yes (Other)
  Sender: FDA-Public Use
  Company Number: CHPA2013US004688

PATIENT
  Age: 78 Year
  Sex: Female

DRUGS (1)
  1. EXCEDRIN TENSION HEADACHE [Suspect]
     Dosage: UNK, PRN
     Route: 048

REACTIONS (3)
  - Ulcer [Not Recovered/Not Resolved]
  - Migraine [Not Recovered/Not Resolved]
  - Expired drug administered [Unknown]
